FAERS Safety Report 9079300 (Version 3)
Quarter: 2014Q3

REPORT INFORMATION
  Report Type: Spontaneous
  Country: US (occurrence: US)
  Receive Date: 20130215
  Receipt Date: 20140714
  Transmission Date: 20150326
  Serious: Yes (Hospitalization, Other)
  Sender: FDA-Public Use
  Company Number: US-009507513-1302USA006748

PATIENT
  Sex: Female
  Weight: 106.58 kg

DRUGS (1)
  1. NUVARING [Suspect]
     Active Substance: ETHINYL ESTRADIOL\ETONOGESTREL
     Indication: CONTRACEPTION
     Dosage: UNK
     Route: 067
     Dates: start: 2005, end: 201102

REACTIONS (14)
  - Loop electrosurgical excision procedure [Unknown]
  - Herpes virus infection [Unknown]
  - Cervical dysplasia [Unknown]
  - Cerebrovascular accident [Unknown]
  - Hypomagnesaemia [Recovered/Resolved]
  - Cervical dysplasia [Unknown]
  - Abortion spontaneous [Unknown]
  - Exostosis [Unknown]
  - Hypercholesterolaemia [Unknown]
  - Urinary tract infection [Unknown]
  - Hyperthyroidism [Unknown]
  - Urinary tract infection [Unknown]
  - Hypokalaemia [Recovered/Resolved]
  - Maternal exposure before pregnancy [Unknown]

NARRATIVE: CASE EVENT DATE: 2005
